FAERS Safety Report 5010998-9 (Version None)
Quarter: 2006Q2

REPORT INFORMATION
  Report Type: 
  Country: None (occurrence: None)
  Receive Date: 20060523
  Receipt Date: 20060509
  Transmission Date: 20061013
  Serious: Yes (Other)
  Sender: FDA-Public Use
  Company Number: HQWYE298711MAY06

PATIENT
  Age: 72 Year
  Sex: Female
  Weight: 68.1 kg

DRUGS (1)
  1. PREMARIN [Suspect]
     Indication: ATROPHIC VULVOVAGINITIS
     Dosage: ONE FULL APPLICATOR NIGHTLY, TOPICAL
     Route: 061
     Dates: start: 20050101, end: 20050101

REACTIONS (1)
  - BREAST CANCER RECURRENT [None]
